FAERS Safety Report 5748070-2 (Version None)
Quarter: 2008Q2

REPORT INFORMATION
  Report Type: 
  Country: None (occurrence: None)
  Receive Date: 20080523
  Receipt Date: 20080514
  Transmission Date: 20081010
  Serious: Yes (Hospitalization)
  Sender: FDA-Public Use
  Company Number: US-AMGEN-QUU276947

PATIENT
  Sex: Female
  Weight: 92.6 kg

DRUGS (6)
  1. ENBREL [Suspect]
     Indication: RHEUMATOID ARTHRITIS
     Route: 058
     Dates: start: 20080423
  2. METHOTREXATE [Concomitant]
     Route: 058
     Dates: start: 20071221
  3. PLAQUENIL [Concomitant]
     Dates: start: 20080109
  4. TYLENOL W/ CODEINE NO. 3 [Concomitant]
     Dates: start: 20071130
  5. FOLIC ACID [Concomitant]
     Dates: start: 20071221
  6. TRAZODONE HCL [Concomitant]

REACTIONS (6)
  - ARTHRITIS [None]
  - BACK PAIN [None]
  - CHEST PAIN [None]
  - HYPERHIDROSIS [None]
  - NAUSEA [None]
  - PARAESTHESIA [None]
